FAERS Safety Report 9163280 (Version 1)
Quarter: 2013Q1

REPORT INFORMATION
  Report Type: Spontaneous
  Country: JP (occurrence: JP)
  Receive Date: 20130314
  Receipt Date: 20130314
  Transmission Date: 20140127
  Serious: Yes (Hospitalization)
  Sender: FDA-Public Use
  Company Number: JP-GLAXOSMITHKLINE-B0873868A

PATIENT
  Age: 5 Decade
  Sex: Female

DRUGS (6)
  1. PAXIL [Suspect]
     Indication: DEPRESSION
     Dosage: 12.5MG PER DAY
     Route: 048
     Dates: start: 201303
  2. ABILIFY [Concomitant]
     Dosage: 12MG PER DAY
     Route: 048
  3. RISPERDAL [Concomitant]
     Route: 065
  4. SILECE [Concomitant]
     Route: 065
  5. MYSLEE [Concomitant]
     Route: 048
  6. NORVASC [Concomitant]
     Route: 048

REACTIONS (2)
  - Suicide attempt [Unknown]
  - Thermal burn [Unknown]
